FAERS Safety Report 5389590-2 (Version None)
Quarter: 2007Q3

REPORT INFORMATION
  Report Type: 
  Country: None (occurrence: None)
  Receive Date: 20070717
  Receipt Date: 20070702
  Transmission Date: 20080115
  Serious: Yes (Death, Hospitalization, Other)
  Sender: FDA-Public Use
  Company Number: US-PFIZER INC-2007055891

PATIENT
  Sex: Male
  Weight: 63.5 kg

DRUGS (6)
  1. BEXTRA [Suspect]
     Indication: PAIN
     Dates: start: 20040101, end: 20040928
  2. CELEBREX [Suspect]
     Indication: PAIN
     Dates: start: 20031001, end: 20040725
  3. VIOXX [Suspect]
     Indication: PAIN
     Dosage: TEXT:25 MG AND 50 MG
     Dates: start: 20040901, end: 20041101
  4. LISINOPRIL [Concomitant]
     Dates: start: 19990610, end: 20040205
  5. HYDROCHLOROTHIAZIDE [Concomitant]
     Dates: start: 19990505, end: 20040205
  6. ZOCOR [Concomitant]
     Dates: start: 20011107, end: 20041001

REACTIONS (1)
  - CEREBROVASCULAR ACCIDENT [None]
